FAERS Safety Report 15437356 (Version 1)
Quarter: 2018Q3

REPORT INFORMATION
  Report Type: Spontaneous
  Country: US (occurrence: US)
  Receive Date: 20180927
  Receipt Date: 20180927
  Transmission Date: 20181010
  Serious: Yes (Hospitalization)
  Sender: FDA-Public Use
  Company Number: US-AMGEN-USASP2018075262

PATIENT
  Age: 80 Year
  Sex: Male
  Weight: 81.4 kg

DRUGS (7)
  1. XGEVA [Suspect]
     Active Substance: DENOSUMAB
     Indication: PROSTATE CANCER
     Dosage: 120 MG, Q4WK
     Route: 058
     Dates: start: 20170628, end: 20180103
  2. XGEVA [Suspect]
     Active Substance: DENOSUMAB
     Indication: METASTASES TO BONE
  3. AVELUMAB [Suspect]
     Active Substance: AVELUMAB
     Indication: PROSTATE CANCER
     Dosage: 10 MG/KG, Q2WK
     Route: 042
     Dates: start: 20180201
  4. AVELUMAB [Suspect]
     Active Substance: AVELUMAB
     Indication: METASTASES TO BONE
  5. ONDANSETRON [Concomitant]
     Active Substance: ONDANSETRON
     Indication: NAUSEA
     Dosage: UNK
     Dates: start: 2016
  6. SYNTHROID [Concomitant]
     Active Substance: LEVOTHYROXINE SODIUM
     Indication: HYPOTHYROIDISM
     Dosage: UNK
     Dates: start: 2016
  7. VITAMIN D [Concomitant]
     Active Substance: CHOLECALCIFEROL
     Dosage: UNK
     Dates: start: 20180324

REACTIONS (4)
  - Muscle spasms [Recovered/Resolved]
  - Gastrooesophageal reflux disease [Recovered/Resolved]
  - Hypocalcaemia [Not Recovered/Not Resolved]
  - Vomiting [Recovered/Resolved]

NARRATIVE: CASE EVENT DATE: 2018
